FAERS Safety Report 9384590 (Version 1)
Quarter: 2013Q3

REPORT INFORMATION
  Report Type: Spontaneous
  Country: US (occurrence: US)
  Receive Date: 20130705
  Receipt Date: 20130705
  Transmission Date: 20140515
  Serious: No
  Sender: FDA-Public Use
  Company Number: US-BAYER-2013-079904

PATIENT
  Sex: 0

DRUGS (1)
  1. MAGNEVIST [Suspect]
     Indication: NUCLEAR MAGNETIC RESONANCE IMAGING
     Dosage: UNK UNK, ONCE, VIAL SIZE 15ML
     Route: 042
     Dates: start: 201306, end: 201306

REACTIONS (2)
  - Vomiting [None]
  - Nausea [None]
